FAERS Safety Report 5416794-2 (Version None)
Quarter: 2007Q3

REPORT INFORMATION
  Report Type: 
  Country: None (occurrence: None)
  Receive Date: 20070816
  Receipt Date: 20070809
  Transmission Date: 20080115
  Serious: Yes (Other)
  Sender: FDA-Public Use
  Company Number: HN-ROCHE-507269

PATIENT
  Age: 81 Year
  Sex: Male

DRUGS (7)
  1. BONIVA [Suspect]
     Indication: OSTEOPOROSIS
     Route: 048
     Dates: start: 20070610
  2. VOLTAREN [Concomitant]
     Dates: end: 20070701
  3. DIGOXIN [Concomitant]
  4. PANTECTA [Concomitant]
  5. DIAMICRON [Concomitant]
  6. ARCOXIA [Concomitant]
  7. ZOMETA [Concomitant]

REACTIONS (4)
  - BONE NEOPLASM MALIGNANT [None]
  - GASTRIC ULCER [None]
  - LOWER LIMB FRACTURE [None]
  - UPPER LIMB FRACTURE [None]
